FAERS Safety Report 16458793 (Version 1)
Quarter: 2019Q2

REPORT INFORMATION
  Report Type: Spontaneous
  Country: US (occurrence: US)
  Receive Date: 20190620
  Receipt Date: 20190620
  Transmission Date: 20190711
  Serious: No
  Sender: FDA-Public Use
  Company Number: US-THERAPEUTICSMD-2019TMD00823

PATIENT
  Age: 65 Year
  Sex: Female
  Weight: 82.54 kg

DRUGS (8)
  1. VITAMIN D [Concomitant]
     Active Substance: VITAMIN D NOS
  2. METFORMIN [Concomitant]
     Active Substance: METFORMIN HYDROCHLORIDE
  3. ZYRTEC [Concomitant]
     Active Substance: CETIRIZINE HYDROCHLORIDE
  4. SUMATRIPTAN. [Concomitant]
     Active Substance: SUMATRIPTAN
     Dosage: UNK, AS NEEDED
  5. NAPROXEN. [Concomitant]
     Active Substance: NAPROXEN
  6. IMVEXXY [Suspect]
     Active Substance: ESTRADIOL
     Indication: INCONTINENCE
     Dosage: 10 ?G ONCE
     Route: 067
     Dates: start: 20190424, end: 20190424
  7. MAGNESIUM [Concomitant]
     Active Substance: MAGNESIUM
  8. MACUHEALTH VITAMIN [Concomitant]

REACTIONS (3)
  - Migraine [Recovered/Resolved]
  - Off label use [Recovered/Resolved]
  - Nausea [Recovered/Resolved]

NARRATIVE: CASE EVENT DATE: 20190424
